FAERS Safety Report 23877016 (Version 1)
Quarter: 2024Q2

REPORT INFORMATION
  Report Type: Spontaneous
  Country: US (occurrence: US)
  Receive Date: 20240521
  Receipt Date: 20240521
  Transmission Date: 20240716
  Serious: Yes (Life-Threatening, Hospitalization, Disabling, Other)
  Sender: FDA-Public Use
  Company Number: US-009507513-2405USA004711

PATIENT
  Age: 60 Year
  Sex: Female

DRUGS (1)
  1. KEYTRUDA [Suspect]
     Active Substance: PEMBROLIZUMAB
     Dosage: 1 INFUSION EVERY 3 WEEKS

REACTIONS (4)
  - Raynaud^s phenomenon [Recovering/Resolving]
  - Finger amputation [Unknown]
  - Pneumonitis [Recovering/Resolving]
  - Adrenal insufficiency [Recovering/Resolving]
